FAERS Safety Report 4747685-8 (Version None)
Quarter: 2005Q3

REPORT INFORMATION
  Report Type: 
  Country: None (occurrence: None)
  Receive Date: 20050817
  Receipt Date: 20050817
  Transmission Date: 20060218
  Serious: Yes (Life-Threatening, Hospitalization)
  Sender: FDA-Public Use
  Company Number: None

PATIENT
  Age: 56 Year
  Sex: Female
  Weight: 45.3597 kg

DRUGS (17)
  1. RITUXAN [Suspect]
     Indication: LYMPHOMA
     Dosage: 555 MG Q 21 DAYS
     Dates: start: 20041202
  2. RITUXAN [Suspect]
     Indication: LYMPHOMA
     Dosage: 555 MG Q 21 DAYS
     Dates: start: 20050112
  3. RITUXAN [Suspect]
     Indication: LYMPHOMA
     Dosage: 555 MG Q 21 DAYS
     Dates: start: 20050207
  4. RITUXAN [Suspect]
     Indication: LYMPHOMA
     Dosage: 555 MG Q 21 DAYS
     Dates: start: 20050303
  5. RITUXAN [Suspect]
     Indication: LYMPHOMA
     Dosage: 555 MG Q 21 DAYS
     Dates: start: 20050324
  6. RITUXAN [Suspect]
     Indication: LYMPHOMA
     Dosage: 555 MG Q 21 DAYS
     Dates: start: 20050414
  7. ADRIAMYCIN PFS [Suspect]
     Indication: LYMPHOMA
     Dosage: 74 MG Q 21 DAYS
     Dates: start: 20050112
  8. ADRIAMYCIN PFS [Suspect]
     Indication: LYMPHOMA
     Dosage: 74 MG Q 21 DAYS
     Dates: start: 20050207
  9. ADRIAMYCIN PFS [Suspect]
     Indication: LYMPHOMA
     Dosage: 74 MG Q 21 DAYS
     Dates: start: 20050303
  10. ADRIAMYCIN PFS [Suspect]
     Indication: LYMPHOMA
     Dosage: 74 MG Q 21 DAYS
     Dates: start: 20050324
  11. ADRIAMYCIN PFS [Suspect]
     Indication: LYMPHOMA
     Dosage: 74 MG Q 21 DAYS
     Dates: start: 20050414
  12. VINCRISTINE [Concomitant]
  13. CYTOXAN [Concomitant]
  14. NEULASTA [Concomitant]
  15. ARANESP [Concomitant]
  16. ALOXI [Concomitant]
  17. DEXAMETHASONE [Concomitant]

REACTIONS (4)
  - AORTIC VALVE INCOMPETENCE [None]
  - CARDIAC ARREST [None]
  - CARDIOMYOPATHY [None]
  - VENTRICULAR FIBRILLATION [None]
